FAERS Safety Report 8545330-7 (Version None)
Quarter: 2012Q3

REPORT INFORMATION
  Report Type: 
  Country: None (occurrence: None)
  Receive Date: 20120719
  Receipt Date: 20120719
  Transmission Date: 20120928
  Serious: Yes (Hospitalization)
  Sender: FDA-Public Use
  Company Number: None

PATIENT
  Sex: Female
  Weight: 90.3 kg

DRUGS (2)
  1. PACLITAXEL [Suspect]
     Dosage: 160 MG
     Dates: end: 20100710
  2. HERCEPTIN [Suspect]
     Dosage: 167 MG
     Dates: end: 20100706

REACTIONS (2)
  - UPPER RESPIRATORY TRACT INFECTION [None]
  - ACUTE PROMYELOCYTIC LEUKAEMIA [None]
